FAERS Safety Report 6836475-8 (Version None)
Quarter: 2010Q3

REPORT INFORMATION
  Report Type: 
  Country: None (occurrence: None)
  Receive Date: 20100713
  Receipt Date: 20100707
  Transmission Date: 20110219
  Serious: Yes (Hospitalization)
  Sender: FDA-Public Use
  Company Number: BE-BRISTOL-MYERS SQUIBB COMPANY-15181704

PATIENT
  Age: 34 Year
  Sex: Female
  Weight: 60 kg

DRUGS (5)
  1. AMIKACIN SULFATE [Suspect]
     Indication: PULMONARY TUBERCULOSIS
     Dosage: ALSO TAKEN 3 TIMES WEEKLY
     Route: 042
  2. PYRAZINAMIDE [Concomitant]
     Indication: PULMONARY TUBERCULOSIS
  3. ETHAMBUTOL HYDROCHLORIDE [Concomitant]
     Indication: PULMONARY TUBERCULOSIS
  4. LINEZOLID [Concomitant]
     Indication: PULMONARY TUBERCULOSIS
  5. PROTHIONAMIDE [Concomitant]
     Indication: PULMONARY TUBERCULOSIS

REACTIONS (3)
  - ALKALOSIS HYPOCHLORAEMIC [None]
  - DEAFNESS [None]
  - HYPOMAGNESAEMIA [None]
